FAERS Safety Report 6373288-8 (Version None)
Quarter: 2009Q3

REPORT INFORMATION
  Report Type: 
  Country: None (occurrence: None)
  Receive Date: 20090924
  Receipt Date: 20090629
  Transmission Date: 20100115
  Serious: Yes (Other)
  Sender: FDA-Public Use
  Company Number: US-ASTRAZENECA-2009UW08565

PATIENT
  Age: 44 Year
  Sex: Female
  Weight: 118.8 kg

DRUGS (11)
  1. SEROQUEL [Suspect]
     Indication: DEPRESSION
     Route: 048
     Dates: start: 20000901, end: 20061201
  2. SEROQUEL [Suspect]
     Indication: INSOMNIA
     Route: 048
     Dates: start: 20000901, end: 20061201
  3. ABILIFY [Concomitant]
     Dates: start: 19990601
  4. BUSPAR [Concomitant]
  5. WELLBUTRIN [Concomitant]
  6. EFFEXOR [Concomitant]
  7. DESYREL [Concomitant]
  8. ATIVAN [Concomitant]
  9. XANAX [Concomitant]
  10. CYMBALTA [Concomitant]
  11. PAMELOR [Concomitant]

REACTIONS (5)
  - ASTHENIA [None]
  - BLOOD CHOLESTEROL INCREASED [None]
  - DIABETIC KETOACIDOSIS [None]
  - SYNCOPE [None]
  - TYPE 2 DIABETES MELLITUS [None]
